FAERS Safety Report 4593319-5 (Version None)
Quarter: 2005Q1

REPORT INFORMATION
  Report Type: 
  Country: None (occurrence: None)
  Receive Date: 20050224
  Receipt Date: 20040420
  Transmission Date: 20050727
  Serious: No
  Sender: FDA-Public Use
  Company Number: US-BRISTOL-MYERS SQUIBB COMPANY-12569513

PATIENT
  Sex: Female

DRUGS (1)
  1. EXCEDRIN (MIGRAINE) [Suspect]
     Indication: HEADACHE
     Dosage: DOSAGE: TOOK 6 EXCEDRIN MIGRAINE TABLETS AT ONCE ON 17-APR-04.
     Route: 048
     Dates: start: 20040417, end: 20040417

REACTIONS (2)
  - MEDICATION ERROR [None]
  - NAUSEA [None]
